FAERS Safety Report 7399545-4 (Version None)
Quarter: 2011Q1

REPORT INFORMATION
  Report Type: 
  Country: None (occurrence: None)
  Receive Date: 20110329
  Receipt Date: 20110316
  Transmission Date: 20110831
  Serious: Yes (Hospitalization)
  Sender: FDA-Public Use
  Company Number: UTC-005742

PATIENT
  Age: 62 Year
  Sex: Female
  Weight: 75 kg

DRUGS (4)
  1. REMODULIN [Suspect]
     Indication: COR PULMONALE CHRONIC
     Dosage: 56.16 UG/KG (0.039 UG/KG, 1 IN 1 MIN) INTRAVENOUS
     Route: 042
     Dates: start: 20100826
  2. TRACLEER [Concomitant]
  3. DIURETICS [Concomitant]
  4. ADCIRCA [Concomitant]

REACTIONS (2)
  - PROCEDURAL COMPLICATION [None]
  - PRESYNCOPE [None]
